FAERS Safety Report 8061025-0 (Version None)
Quarter: 2012Q1

REPORT INFORMATION
  Report Type: 
  Country: None (occurrence: None)
  Receive Date: 20120120
  Receipt Date: 20110428
  Transmission Date: 20120608
  Serious: No
  Sender: FDA-Public Use
  Company Number: US-ALLERGAN-1105891US

PATIENT
  Age: 60 Year
  Sex: Female

DRUGS (3)
  1. FML FORTEA? [Concomitant]
     Indication: INFLAMMATION
     Dosage: UNK, BID TO RIGHT, TID TO LEFT
     Route: 047
  2. RESTASIS [Suspect]
     Indication: DRY EYE
     Dosage: 2 GTT, BID
     Route: 047
     Dates: start: 20110425
  3. EYE DROPS [Suspect]
     Indication: PRODUCT USED FOR UNKNOWN INDICATION
     Dosage: OTC
     Route: 047

REACTIONS (1)
  - EYE IRRITATION [None]
